FAERS Safety Report 19705194 (Version 2)
Quarter: 2021Q3

REPORT INFORMATION
  Report Type: Other
  Country: US (occurrence: US)
  Receive Date: 20210816
  Receipt Date: 20210922
  Transmission Date: 20211014
  Serious: No
  Sender: FDA-Public Use
  Company Number: US-NEUROCRINE BIOSCIENCES INC.-2021NBI04272

PATIENT

DRUGS (6)
  1. BENADRYL [Suspect]
     Active Substance: DIPHENHYDRAMINE HYDROCHLORIDE
     Indication: ANXIETY
     Dosage: 25 MILLIGRAM
     Route: 048
     Dates: end: 20210611
  2. BUMEX [Concomitant]
     Active Substance: BUMETANIDE
     Indication: CARDIAC FAILURE CONGESTIVE
     Dosage: 1 MILLIGRAM
     Route: 048
     Dates: end: 20210604
  3. INGREZZA [Suspect]
     Active Substance: VALBENAZINE
     Indication: PSYCHOTIC DISORDER
     Dosage: 40 MILLIGRAM, QD
     Route: 048
     Dates: start: 20210618, end: 20210712
  4. INGREZZA [Suspect]
     Active Substance: VALBENAZINE
     Dosage: 60 MILLIGRAM, QD
     Route: 048
     Dates: start: 20210713
  5. MELATONIN [Concomitant]
     Active Substance: MELATONIN
     Indication: INSOMNIA
     Dosage: 10 MILLIGRAM, QHS
     Route: 048
     Dates: end: 20210708
  6. MONTELUKAST [Concomitant]
     Active Substance: MONTELUKAST SODIUM
     Indication: ASTHMA
     Dosage: UNK
     Route: 048
     Dates: end: 20210731

REACTIONS (3)
  - Dry mouth [Unknown]
  - Breast pain [Unknown]
  - Off label use [Unknown]

NARRATIVE: CASE EVENT DATE: 2021
